FAERS Safety Report 8584515-0 (Version None)
Quarter: 2012Q3

REPORT INFORMATION
  Report Type: 
  Country: None (occurrence: None)
  Receive Date: 20120810
  Receipt Date: 20120806
  Transmission Date: 20120928
  Serious: Yes (Other)
  Sender: FDA-Public Use
  Company Number: US-PFIZER INC-2012159364

PATIENT
  Age: 57 Year
  Sex: Male

DRUGS (17)
  1. METFORMIN [Concomitant]
  2. DILTIAZEM [Concomitant]
  3. CITALOPRAM [Concomitant]
  4. CELEXA [Concomitant]
  5. HYDROCODONE [Concomitant]
  6. WARFARIN [Concomitant]
     Dosage: UNK
  7. ALLOPURINOL [Concomitant]
  8. PRAVASTATIN [Concomitant]
  9. DIGOXIN [Concomitant]
  10. GLUCOPHAGE [Concomitant]
  11. SUTENT [Suspect]
     Indication: RENAL CANCER
     Dosage: 50 MG, 1X/DAY, 4 WKS ON, 2 WKS OFF
     Route: 048
     Dates: start: 20120411, end: 20120517
  12. ASPIRIN [Concomitant]
     Dosage: UNK
  13. TORSEMIDE [Concomitant]
  14. LASIX [Concomitant]
  15. LANOXIN [Concomitant]
     Dosage: UNK
  16. ATENOLOL [Concomitant]
  17. COMPAZINE [Concomitant]

REACTIONS (10)
  - DYSPNOEA [None]
  - PLATELET COUNT DECREASED [None]
  - DECREASED APPETITE [None]
  - WEIGHT DECREASED [None]
  - CONTUSION [None]
  - PHARYNGITIS [None]
  - OEDEMA PERIPHERAL [None]
  - MUCOSAL INFLAMMATION [None]
  - FALL [None]
  - OROPHARYNGEAL PAIN [None]
